FAERS Safety Report 6640929-7 (Version None)
Quarter: 2010Q1

REPORT INFORMATION
  Report Type: 
  Country: None (occurrence: None)
  Receive Date: 20100318
  Receipt Date: 20100315
  Transmission Date: 20100710
  Serious: Yes (Other)
  Sender: FDA-Public Use
  Company Number: US-KINGPHARMUSA00001-K201000310

PATIENT
  Sex: Male
  Weight: 51.701 kg

DRUGS (2)
  1. BICILLIN L-A [Suspect]
     Indication: STREPTOCOCCAL INFECTION
     Dosage: 1.2 MILLION UNIT, SINGLE
     Route: 030
     Dates: start: 20100304, end: 20100304
  2. IBUPROFEN [Concomitant]

REACTIONS (11)
  - ABASIA [None]
  - ARTHRALGIA [None]
  - ASTHENIA [None]
  - CONVULSION [None]
  - DIZZINESS [None]
  - FEELING COLD [None]
  - INJECTION SITE PAIN [None]
  - MUSCLE TWITCHING [None]
  - MYOCLONUS [None]
  - PALLOR [None]
  - RESPIRATORY ARREST [None]
